FAERS Safety Report 4811755-6 (Version None)
Quarter: 2005Q4

REPORT INFORMATION
  Report Type: 
  Country: None (occurrence: None)
  Receive Date: 20051028
  Receipt Date: 20051024
  Transmission Date: 20060501
  Serious: Yes (Death)
  Sender: FDA-Public Use
  Company Number: GB-BOEHRINGER INGELHEIM PHARMACEUTICALS, INC.-2005-BP-18844YA

PATIENT
  Age: 61 Year
  Sex: Male

DRUGS (7)
  1. FLOMAX [Suspect]
     Route: 048
  2. SPIRIVA [Suspect]
     Route: 055
  3. CALCICHEW D3 [Suspect]
  4. SALBUTAMOL [Suspect]
     Route: 055
  5. SERETIDE [Suspect]
     Route: 055
  6. ASPIRIN [Suspect]
     Route: 048
  7. OMEPRAZOLE [Suspect]

REACTIONS (2)
  - ASBESTOSIS [None]
  - CHRONIC OBSTRUCTIVE PULMONARY DISEASE [None]
